FAERS Safety Report 8887917 (Version 1)
Quarter: 2012Q4

REPORT INFORMATION
  Report Type: Spontaneous
  Country: US (occurrence: None)
  Receive Date: 20121101
  Receipt Date: 20121101
  Transmission Date: 20130627
  Serious: No
  Sender: FDA-Public Use
  Company Number: None

PATIENT
  Age: 73 Year
  Sex: Male
  Weight: 81.4 kg

DRUGS (3)
  1. RANITIDINE\RANITIDINE HYDROCHLORIDE [Suspect]
     Indication: PAIN
     Dosage: 50 MG ONCE IV
     Route: 042
     Dates: start: 20120808, end: 20120808
  2. RANITIDINE\RANITIDINE HYDROCHLORIDE [Suspect]
     Indication: CHEST PAIN
     Dosage: 50 MG ONCE IV
     Route: 042
     Dates: start: 20120808, end: 20120808
  3. RANITIDINE\RANITIDINE HYDROCHLORIDE [Suspect]
     Dosage: 50 MG ONCE IV
     Route: 042
     Dates: start: 20120808, end: 20120808

REACTIONS (4)
  - Hypotension [None]
  - Bradycardia [None]
  - Cold sweat [None]
  - Hyperhidrosis [None]
